FAERS Safety Report 21200966 (Version 2)
Quarter: 2022Q3

REPORT INFORMATION
  Report Type: Spontaneous
  Country: KR (occurrence: KR)
  Receive Date: 20220811
  Receipt Date: 20220831
  Transmission Date: 20221027
  Serious: Yes (Death, Other)
  Sender: FDA-Public Use
  Company Number: KR-ALXN-A202209353

PATIENT
  Age: 45 Year
  Sex: Male

DRUGS (1)
  1. SOLIRIS [Suspect]
     Active Substance: ECULIZUMAB
     Indication: Atypical haemolytic uraemic syndrome
     Dosage: UNK (3 VIALS)
     Route: 065
     Dates: start: 20220802

REACTIONS (1)
  - Death [Fatal]

NARRATIVE: CASE EVENT DATE: 20220804
